FAERS Safety Report 9891580 (Version 2)
Quarter: 2014Q2

REPORT INFORMATION
  Report Type: Spontaneous
  Country: GB (occurrence: GB)
  Receive Date: 20140212
  Receipt Date: 20140520
  Transmission Date: 20141212
  Serious: Yes (Hospitalization, Other)
  Sender: FDA-Public Use
  Company Number: GB-UCBSA-111778

PATIENT
  Sex: Male

DRUGS (3)
  1. VIMPAT [Suspect]
     Indication: COMPLEX PARTIAL SEIZURES
     Dates: start: 201305, end: 201309
  2. VIMPAT [Suspect]
     Indication: COMPLEX PARTIAL SEIZURES
     Dates: start: 201311
  3. LAMOTRIGINE [Concomitant]
     Dosage: 250 TWICE A DAY
     Dates: start: 2009

REACTIONS (9)
  - Psychotic disorder [Not Recovered/Not Resolved]
  - Suicidal ideation [Not Recovered/Not Resolved]
  - Depressed mood [Not Recovered/Not Resolved]
  - Confusional state [Not Recovered/Not Resolved]
  - Mental impairment [Not Recovered/Not Resolved]
  - Aggression [Not Recovered/Not Resolved]
  - Suspiciousness [Not Recovered/Not Resolved]
  - Memory impairment [Not Recovered/Not Resolved]
  - Encephalitis [Not Recovered/Not Resolved]
